FAERS Safety Report 5757215-X (Version None)
Quarter: 2008Q2

REPORT INFORMATION
  Report Type: 
  Country: None (occurrence: None)
  Receive Date: 20080603
  Receipt Date: 20080523
  Transmission Date: 20081010
  Serious: Yes (Hospitalization, Other)
  Sender: FDA-Public Use
  Company Number: DE-BRISTOL-MYERS SQUIBB COMPANY-14192371

PATIENT
  Age: 50 Year
  Sex: Male

DRUGS (7)
  1. ORENCIA [Suspect]
     Indication: SPONDYLOARTHROPATHY
     Route: 042
  2. CAPROS [Concomitant]
  3. VALORON N [Concomitant]
  4. ARCOXIA [Concomitant]
  5. AMITRIPTYLINE HCL [Concomitant]
     Dosage: 1 DOSAGE FORM =  75, UNIT NOT SPECIFIED
  6. NEXIUM [Concomitant]
  7. CALCIUM + VITAMIN D [Concomitant]

REACTIONS (2)
  - ANAPHYLACTIC REACTION [None]
  - PRESYNCOPE [None]
